FAERS Safety Report 7042850-1 (Version None)
Quarter: 2010Q4

REPORT INFORMATION
  Report Type: 
  Country: None (occurrence: None)
  Receive Date: 20101013
  Receipt Date: 20100503
  Transmission Date: 20110411
  Serious: No
  Sender: FDA-Public Use
  Company Number: US-ASTRAZENECA-2010SE18802

PATIENT
  Sex: Female

DRUGS (2)
  1. SYMBICORT [Suspect]
     Indication: PULMONARY CONGESTION
     Dosage: 160/4.5 UG 2 PUFFS DAILY
     Route: 055
  2. SYMBICORT [Suspect]
     Indication: WHEEZING
     Dosage: 160/4.5 UG 2 PUFFS DAILY
     Route: 055

REACTIONS (6)
  - DRUG INEFFECTIVE [None]
  - HEADACHE [None]
  - HYPOAESTHESIA [None]
  - PARAESTHESIA [None]
  - TACHYCARDIA [None]
  - URTICARIA [None]
